FAERS Safety Report 6446754-4 (Version None)
Quarter: 2009Q4

REPORT INFORMATION
  Report Type: 
  Country: None (occurrence: None)
  Receive Date: 20091119
  Receipt Date: 20091106
  Transmission Date: 20100525
  Serious: Yes (Hospitalization)
  Sender: FDA-Public Use
  Company Number: PHHY2009CA26156

PATIENT
  Sex: Male

DRUGS (1)
  1. SANDOSTATIN LAR [Suspect]
     Indication: CARCINOID SYNDROME
     Dosage: 30 MG EVERY 3 WEEKS
     Route: 030
     Dates: start: 20070425

REACTIONS (3)
  - CHEST PAIN [None]
  - DIARRHOEA [None]
  - FLUSHING [None]
